FAERS Safety Report 5404915-7 (Version None)
Quarter: 2007Q3

REPORT INFORMATION
  Report Type: 
  Country: None (occurrence: None)
  Receive Date: 20070803
  Receipt Date: 20070731
  Transmission Date: 20080115
  Serious: Yes (Life-Threatening)
  Sender: FDA-Public Use
  Company Number: JP-BRISTOL-MYERS SQUIBB COMPANY-13859566

PATIENT
  Age: 64 Year
  Sex: Female

DRUGS (4)
  1. TAXOL [Suspect]
     Indication: OVARIAN CANCER
     Route: 041
     Dates: start: 20060712, end: 20060712
  2. PARAPLATIN [Suspect]
     Indication: OVARIAN CANCER
     Route: 041
     Dates: start: 20060526, end: 20060526
  3. DOXIL [Suspect]
     Indication: OVARIAN CANCER
     Route: 042
     Dates: start: 20060331, end: 20060331
  4. TAXOTERE [Concomitant]
     Indication: OVARIAN CANCER
     Route: 042
     Dates: start: 20070424, end: 20070424

REACTIONS (1)
  - ACUTE MYELOID LEUKAEMIA [None]
